FAERS Safety Report 8382922 (Version 4)
Quarter: 2015Q1

REPORT INFORMATION
  Report Type: Report from Study
  Country: US (occurrence: US)
  Receive Date: 20120201
  Receipt Date: 20150225
  Transmission Date: 20150721
  Serious: Yes (Death)
  Sender: FDA-Public Use
  Company Number: US-ROCHE-1035153

PATIENT
  Sex: Male
  Weight: 97 kg

DRUGS (14)
  1. LASIX [Suspect]
     Active Substance: FUROSEMIDE
     Indication: PRODUCT USED FOR UNKNOWN INDICATION
     Route: 065
  2. ATENOLOL. [Concomitant]
     Active Substance: ATENOLOL
  3. FELODIPINE. [Concomitant]
     Active Substance: FELODIPINE
  4. AVASTIN [Suspect]
     Active Substance: BEVACIZUMAB
     Indication: CHOLANGIOCARCINOMA
     Route: 042
     Dates: start: 20070621
  5. AVASTIN [Suspect]
     Active Substance: BEVACIZUMAB
     Route: 042
  6. GEMZAR [Concomitant]
     Active Substance: GEMCITABINE HYDROCHLORIDE
     Route: 065
     Dates: start: 200705
  7. AVASTIN [Suspect]
     Active Substance: BEVACIZUMAB
     Indication: HEPATIC CANCER
     Route: 042
  8. AVAPRO [Concomitant]
     Active Substance: IRBESARTAN
  9. INSULIN [Concomitant]
     Active Substance: INSULIN NOS
  10. COUMADIN (UNITED STATES) [Concomitant]
  11. ZOFRAN [Concomitant]
     Active Substance: ONDANSETRON HYDROCHLORIDE
     Route: 065
  12. COMPAZINE [Concomitant]
     Active Substance: PROCHLORPERAZINE MALEATE
     Route: 048
  13. HYDROCHLOROTHIAZIDE. [Concomitant]
     Active Substance: HYDROCHLOROTHIAZIDE
  14. PROCRIT [Concomitant]
     Active Substance: ERYTHROPOIETIN
     Dosage: 14 K
     Route: 065

REACTIONS (15)
  - Biliary cancer metastatic [Fatal]
  - Fatigue [Unknown]
  - Haemoglobin decreased [Unknown]
  - Pleural effusion [Unknown]
  - Weight increased [Unknown]
  - Nausea [Unknown]
  - Constipation [Unknown]
  - Ascites [Unknown]
  - Renal impairment [Unknown]
  - Proteinuria [Unknown]
  - Off label use [Unknown]
  - Anxiety [Unknown]
  - Infection [Unknown]
  - Vomiting [Unknown]
  - Oedema peripheral [Recovered/Resolved]
